FAERS Safety Report 13820549 (Version 1)
Quarter: 2017Q3

REPORT INFORMATION
  Report Type: Spontaneous
  Country: US (occurrence: US)
  Receive Date: 20170801
  Receipt Date: 20170801
  Transmission Date: 20171127
  Serious: No
  Sender: FDA-Public Use
  Company Number: US-JNJFOC-20170627209

PATIENT
  Sex: Female

DRUGS (1)
  1. TRINESSA [Suspect]
     Active Substance: ETHINYL ESTRADIOL\NORGESTIMATE
     Indication: PRODUCT USED FOR UNKNOWN INDICATION
     Dosage: 0.180 MG / 0.025 MG; 0.215 MG / 0.025 MG; 0.250 MG / 0.025 MG
     Route: 065

REACTIONS (2)
  - Product packaging quantity issue [Unknown]
  - Product physical issue [Unknown]
